FAERS Safety Report 9116098 (Version 1)
Quarter: 2013Q1

REPORT INFORMATION
  Report Type: Spontaneous
  Country: BR (occurrence: BR)
  Receive Date: 20130225
  Receipt Date: 20130225
  Transmission Date: 20140127
  Serious: Yes (Other)
  Sender: FDA-Public Use
  Company Number: BR-ASTRAZENECA-2013SE11582

PATIENT
  Age: 23599 Day
  Sex: Male

DRUGS (2)
  1. ATACAND HCT [Suspect]
     Indication: HYPERTENSION
     Dosage: 8/12.5MG, 1TABLET PER DAY
     Route: 048
     Dates: start: 20121001
  2. ATACAND HCT [Suspect]
     Indication: HYPERTENSION
     Dosage: 8/12.5MG, 2 TABLETS PER DAY
     Route: 048
     Dates: end: 20130215

REACTIONS (4)
  - Drug ineffective [Unknown]
  - Hypertension [Recovering/Resolving]
  - Muscle spasms [Unknown]
  - Intentional drug misuse [Recovered/Resolved]
